FAERS Safety Report 24691101 (Version 2)
Quarter: 2025Q3

REPORT INFORMATION
  Report Type: Report from Study
  Country: GB (occurrence: GB)
  Receive Date: 20241203
  Receipt Date: 20250802
  Transmission Date: 20251020
  Serious: Yes (Other)
  Sender: ALEXION PHARMACEUTICALS
  Company Number: GB-ALXN-202407GBR000974GB

PATIENT
  Age: 58 Year
  Sex: Male

DRUGS (1)
  1. ULTOMIRIS [Suspect]
     Active Substance: RAVULIZUMAB-CWVZ
     Indication: Paroxysmal nocturnal haemoglobinuria
     Dosage: 3300 MILLIGRAM, Q8W

REACTIONS (4)
  - Multiple sclerosis [Unknown]
  - Diabetes mellitus [Unknown]
  - Dyspnoea [Not Recovered/Not Resolved]
  - Dyspnoea exertional [Unknown]
